FAERS Safety Report 5752874-X (Version None)
Quarter: 2008Q2

REPORT INFORMATION
  Report Type: 
  Country: None (occurrence: None)
  Receive Date: 20080529
  Receipt Date: 20080519
  Transmission Date: 20081010
  Serious: Yes (Other)
  Sender: FDA-Public Use
  Company Number: DE-BOEHRINGER INGELHEIM GMBH, GERMANY-2008-DE-02922DE

PATIENT
  Sex: Male

DRUGS (5)
  1. VIRAMUNE [Suspect]
     Route: 048
  2. DESLORATADINE [Suspect]
     Route: 048
  3. COCAIN [Suspect]
     Route: 048
  4. DICLAC [Suspect]
     Route: 048
  5. LORMETAZEPAM [Suspect]
     Route: 048

REACTIONS (4)
  - APATHY [None]
  - DRUG ABUSE [None]
  - OVERDOSE [None]
  - SUICIDE ATTEMPT [None]
